FAERS Safety Report 25704578 (Version 1)
Quarter: 2025Q3

REPORT INFORMATION
  Report Type: Spontaneous
  Country: EU (occurrence: EU)
  Receive Date: 20250820
  Receipt Date: 20250820
  Transmission Date: 20251021
  Serious: Yes (Other)
  Sender: ACCORD
  Company Number: EU-MLMSERVICE-20250804-PI603380-00218-1

PATIENT
  Age: 43 Year
  Sex: Female

DRUGS (1)
  1. METHOTREXATE [Suspect]
     Active Substance: METHOTREXATE
     Indication: Eczema nummular

REACTIONS (2)
  - Traumatic lung injury [Recovering/Resolving]
  - Off label use [Unknown]
